FAERS Safety Report 23175239 (Version 3)
Quarter: 2024Q2

REPORT INFORMATION
  Report Type: Other
  Country: IT (occurrence: None)
  Receive Date: 20231113
  Receipt Date: 20240531
  Transmission Date: 20240716
  Serious: Yes (Other)
  Sender: FDA-Public Use
  Company Number: IT-ROCHE-2610172

PATIENT
  Age: 70 Year
  Sex: Female

DRUGS (4)
  1. OBINUTUZUMAB [Suspect]
     Active Substance: OBINUTUZUMAB
     Indication: Follicular lymphoma
     Route: 042
     Dates: start: 20190627, end: 20191211
  2. OBINUTUZUMAB [Suspect]
     Active Substance: OBINUTUZUMAB
     Route: 065
     Dates: start: 20200212
  3. OBINUTUZUMAB [Suspect]
     Active Substance: OBINUTUZUMAB
     Route: 065
     Dates: start: 20200521
  4. BENDAMUSTINE [Concomitant]
     Active Substance: BENDAMUSTINE
     Route: 042
     Dates: start: 20190709, end: 20191212

REACTIONS (4)
  - Neutropenia [Recovered/Resolved]
  - Neutropenia [Recovering/Resolving]
  - Myelodysplastic syndrome with excess blasts [Not Recovered/Not Resolved]
  - Off label use [Unknown]

NARRATIVE: CASE EVENT DATE: 20200513
